FAERS Safety Report 13692172 (Version 2)
Quarter: 2017Q3

REPORT INFORMATION
  Report Type: Spontaneous
  Country: US (occurrence: US)
  Receive Date: 20170627
  Receipt Date: 20170724
  Transmission Date: 20171127
  Serious: No
  Sender: FDA-Public Use
  Company Number: ALCN2017US004069

PATIENT
  Sex: Female

DRUGS (1)
  1. PREDNISOLONE SCHEIN [Suspect]
     Active Substance: PREDNISOLONE
     Indication: EYE OPERATION
     Route: 047

REACTIONS (2)
  - Product container issue [Unknown]
  - Superficial injury of eye [Unknown]
